FAERS Safety Report 24064597 (Version 2)
Quarter: 2024Q3

REPORT INFORMATION
  Report Type: Report from Study
  Country: US (occurrence: US)
  Receive Date: 20240709
  Receipt Date: 20240709
  Transmission Date: 20241016
  Serious: Yes (Other)
  Sender: PFIZER
  Company Number: US-KINGPHARMUSA00001-K201100485

PATIENT
  Age: 75 Year
  Sex: Female

DRUGS (2)
  1. THROMBIN-JMI [Suspect]
     Active Substance: THROMBIN
     Indication: Procedural haemorrhage
     Dosage: UNK, SINGLE
     Route: 018
  2. DEVICE\GELATIN [Suspect]
     Active Substance: DEVICE\GELATIN
     Indication: Procedural haemorrhage
     Dosage: UNK, SINGLE
     Route: 018

REACTIONS (6)
  - Incorrect route of product administration [Recovered/Resolved]
  - Transverse sinus thrombosis [Recovering/Resolving]
  - VIth nerve paralysis [Recovering/Resolving]
  - Facial paralysis [Recovered/Resolved]
  - Diplopia [Recovered/Resolved]
  - Dizziness [Not Recovered/Not Resolved]
